FAERS Safety Report 7910190-1 (Version None)
Quarter: 2011Q4

REPORT INFORMATION
  Report Type: 
  Country: None (occurrence: None)
  Receive Date: 20111111
  Receipt Date: 20110928
  Transmission Date: 20120403
  Serious: Yes (Hospitalization)
  Sender: FDA-Public Use
  Company Number: FR-ROCHE-751430

PATIENT
  Sex: Male
  Weight: 19.2 kg

DRUGS (26)
  1. AMITRIPTYLINE HCL [Concomitant]
  2. AVASTIN [Suspect]
     Indication: RHABDOMYOSARCOMA
     Dosage: DOSAGE FORM: 7.5 MG/KG, LAST DOSE PRIOR TO SAE: 05 JANUARY 2011
     Route: 042
  3. MORPHINE [Concomitant]
     Dates: start: 20101102, end: 20101111
  4. ROCEPHIN [Concomitant]
     Dates: start: 20101223, end: 20110103
  5. PLITICAN [Concomitant]
     Dosage: TDD: 20-92 MG/D
     Dates: start: 20101110, end: 20101110
  6. DACTINOMYCIN [Suspect]
     Indication: RHABDOMYOSARCOMA
     Dosage: FORM: 1.5 MG/M2, LAST DOSE PRIOR TO SAE: 05 JANUARY 2011
     Route: 042
  7. PLITICAN [Concomitant]
     Dosage: TDD: 20-92 MG/D
     Dates: start: 20101103, end: 20101107
  8. CYCLOPHOSPHAMIDE [Suspect]
     Indication: RHABDOMYOSARCOMA
     Dosage: DOSAGE FORM: 750 MG/M2 LAST DOSE PRIOR TO SAE: 6 JANUARY 2011
     Route: 042
  9. NEUPOGEN [Concomitant]
     Dates: start: 20110113, end: 20110118
  10. DESLORATADINE [Concomitant]
  11. VINCRISTINE [Suspect]
     Indication: RHABDOMYOSARCOMA
     Dosage: FORM: 1.5 MG/M2, LAST DOSE PRIOR TO SAE: 05 JANUARY 2011
     Route: 042
  12. DOXORUBICIN HCL [Suspect]
     Indication: RHABDOMYOSARCOMA
     Dosage: FORM: 60 MG/M2,LAST DOSE PRIOR TO SAE: 06 JANUARY 2011
     Route: 042
  13. MOVIPREP [Concomitant]
  14. PIPERACILLIN AND TAZOBACTAM [Concomitant]
     Dates: start: 20110114, end: 20110118
  15. XANAX [Concomitant]
     Dates: start: 20101106, end: 20101110
  16. IFOSFAMIDE [Suspect]
     Indication: RHABDOMYOSARCOMA
     Dosage: FORM: 6 G/M2,LAST DOSE PRIOR TO SAE: 16 DEC 2010
     Route: 042
  17. FLUTICASONE PROPIONATE [Concomitant]
     Dosage: TDD: 2 BOLUS PER DAY
  18. AMIKACIN [Concomitant]
     Dates: start: 20101223, end: 20101227
  19. ZOFRAN [Concomitant]
     Dates: start: 20101110, end: 20101110
  20. PROCTOLOG [Concomitant]
  21. KETAMINE HCL [Concomitant]
  22. DUPHALAC [Concomitant]
     Dates: start: 20101106, end: 20101110
  23. NEURONTIN [Concomitant]
     Dates: start: 20101104, end: 20101112
  24. VANCOMYCIN [Concomitant]
     Dates: start: 20101223, end: 20110103
  25. CLONAZEPAM [Concomitant]
     Dosage: TDD:3 DROP/D
     Dates: start: 20101102, end: 20101107
  26. BACTRIM [Concomitant]

REACTIONS (2)
  - FEBRILE BONE MARROW APLASIA [None]
  - MUCOSAL INFLAMMATION [None]
